APPROVED DRUG PRODUCT: ULSPIRA
Active Ingredient: NITRIC OXIDE
Strength: 800PPM
Dosage Form/Route: GAS;INHALATION
Application: A203144 | Product #001 | TE Code: AA
Applicant: AIRGAS THERAPEUTICS LLC
Approved: Jul 27, 2023 | RLD: No | RS: No | Type: RX